FAERS Safety Report 6895015-8 (Version None)
Quarter: 2010Q3

REPORT INFORMATION
  Report Type: 
  Country: None (occurrence: None)
  Receive Date: 20100727
  Receipt Date: 20100714
  Transmission Date: 20110219
  Serious: Yes (Death)
  Sender: FDA-Public Use
  Company Number: A-CH2010-38077

PATIENT
  Age: 71 Year
  Sex: Male
  Weight: 82 kg

DRUGS (3)
  1. TRACLEER [Suspect]
     Indication: PULMONARY ARTERIAL HYPERTENSION
     Dosage: 125 MG, BID, ORAL
     Route: 048
     Dates: start: 20100401
  2. OLMESARTAN MEDOXOMIL [Suspect]
     Dosage: 10 MG, ORAL
     Route: 048
     Dates: start: 20100401
  3. TRIAMTERENE AND HYDROCHLOROTHIAZIDE [Suspect]
     Dosage: 1 DF, ORAL
     Route: 048
     Dates: start: 20100401

REACTIONS (5)
  - CHOLANGITIS [None]
  - PNEUMONIA [None]
  - RENAL FAILURE ACUTE [None]
  - RIGHT VENTRICULAR FAILURE [None]
  - SEPTIC SHOCK [None]
